FAERS Safety Report 23942562 (Version 2)
Quarter: 2024Q2

REPORT INFORMATION
  Report Type: Report from Study
  Country: US (occurrence: US)
  Receive Date: 20240605
  Receipt Date: 20240613
  Transmission Date: 20240716
  Serious: Yes (Other)
  Sender: FDA-Public Use
  Company Number: US-BAYER-2024A079475

PATIENT
  Age: 56 Year
  Sex: Male

DRUGS (4)
  1. STIVARGA [Suspect]
     Active Substance: REGORAFENIB\REGORAFENIB MONOHYDRATE
     Indication: Colorectal cancer
     Dosage: 40 MG, QD (FOR 21 DAYS)
     Route: 048
     Dates: start: 202309
  2. STIVARGA [Suspect]
     Active Substance: REGORAFENIB\REGORAFENIB MONOHYDRATE
     Indication: Metastases to lung
     Dosage: 80 MG, QD (FOR 21 DAYS)
     Route: 048
     Dates: start: 202311
  3. STIVARGA [Suspect]
     Active Substance: REGORAFENIB\REGORAFENIB MONOHYDRATE
     Indication: Colorectal cancer
     Dosage: 120 MG, QD (FOR 21 DAYS ON AND 7 DAYS OFF WITH A LOW FAT MEAL ALLOSTIM)
     Route: 048
     Dates: start: 202402, end: 202403
  4. STIVARGA [Suspect]
     Active Substance: REGORAFENIB\REGORAFENIB MONOHYDRATE
     Indication: Colorectal cancer
     Dosage: 80 MG, QD
     Route: 048
     Dates: start: 20240608

REACTIONS (3)
  - Vocal cord paralysis [Recovering/Resolving]
  - Fatigue [Not Recovered/Not Resolved]
  - Off label use [None]

NARRATIVE: CASE EVENT DATE: 20230901
